FAERS Safety Report 17356059 (Version 1)
Quarter: 2020Q1

REPORT INFORMATION
  Report Type: Spontaneous
  Country: US (occurrence: US)
  Receive Date: 20200131
  Receipt Date: 20200131
  Transmission Date: 20200409
  Serious: Yes (Other)
  Sender: FDA-Public Use
  Company Number: US-ABBVIE-20K-163-3249483-00

PATIENT
  Sex: Female

DRUGS (2)
  1. SYNTHROID [Suspect]
     Active Substance: LEVOTHYROXINE SODIUM
     Route: 048
  2. SYNTHROID [Suspect]
     Active Substance: LEVOTHYROXINE SODIUM
     Indication: PRODUCT USED FOR UNKNOWN INDICATION
     Dosage: EVERY 3 MONTHS DOSES CHANGED
     Route: 048
     Dates: start: 2012

REACTIONS (8)
  - Psychomotor hyperactivity [Unknown]
  - Decreased activity [Unknown]
  - Thyrotoxic crisis [Unknown]
  - Thyroid disorder [Unknown]
  - General symptom [Unknown]
  - Near death experience [Unknown]
  - Depression [Unknown]
  - Blood thyroid stimulating hormone abnormal [Unknown]
